FAERS Safety Report 7999807-3 (Version None)
Quarter: 2011Q4

REPORT INFORMATION
  Report Type: 
  Country: None (occurrence: None)
  Receive Date: 20111222
  Receipt Date: 20111213
  Transmission Date: 20120403
  Serious: Yes (Other)
  Sender: FDA-Public Use
  Company Number: DZ-BIOGENIDEC-2011BI044341

PATIENT
  Age: 39 Year
  Sex: Female

DRUGS (3)
  1. VITAMIN B1 TAB [Concomitant]
  2. AVONEX [Suspect]
     Indication: RELAPSING-REMITTING MULTIPLE SCLEROSIS
     Route: 030
     Dates: start: 20090701, end: 20110913
  3. LEVOTHYROXINE SODIUM [Concomitant]
     Indication: HYPOPARATHYROIDISM
     Dates: start: 20020101

REACTIONS (5)
  - FEAR [None]
  - CEREBELLAR SYNDROME [None]
  - OBSTRUCTIVE AIRWAYS DISORDER [None]
  - FATIGUE [None]
  - MYALGIA [None]
